FAERS Safety Report 7946948-2 (Version None)
Quarter: 2011Q4

REPORT INFORMATION
  Report Type: 
  Country: None (occurrence: None)
  Receive Date: 20111129
  Receipt Date: 20070924
  Transmission Date: 20120403
  Serious: Yes (Other)
  Sender: FDA-Public Use
  Company Number: PHHY2007NZ011389

PATIENT
  Sex: Male

DRUGS (1)
  1. EXELON [Suspect]

REACTIONS (3)
  - ATRIAL FIBRILLATION [None]
  - LOWER RESPIRATORY TRACT INFECTION [None]
  - EYE HAEMORRHAGE [None]
